FAERS Safety Report 4932844-1 (Version None)
Quarter: 2006Q1

REPORT INFORMATION
  Report Type: 
  Country: None (occurrence: None)
  Receive Date: 20060306
  Receipt Date: 20060222
  Transmission Date: 20060701
  Serious: Yes (Other)
  Sender: FDA-Public Use
  Company Number: PHBS2006JP03089

PATIENT

DRUGS (1)
  1. ZADITEN [Suspect]

REACTIONS (1)
  - CONVULSION [None]
